FAERS Safety Report 16238707 (Version 1)
Quarter: 2019Q2

REPORT INFORMATION
  Report Type: Spontaneous
  Country: SI (occurrence: SI)
  Receive Date: 20190425
  Receipt Date: 20190425
  Transmission Date: 20190711
  Serious: Yes (Life-Threatening, Hospitalization)
  Sender: FDA-Public Use
  Company Number: SI-TEVA-2019-SI-1041230

PATIENT
  Age: 66 Year
  Sex: Female

DRUGS (4)
  1. FODISS 20 MG [Concomitant]
  2. CANDEA HCT 32 MG/12,5 MG [Concomitant]
     Dosage: 32/12,5 MG
  3. BOPACATIN 10 MG/ML [Suspect]
     Active Substance: CARBOPLATIN
     Indication: MALIGNANT PERITONEAL NEOPLASM
     Dosage: INFUSION AMPOULES, VIALS/BOTTLES
     Route: 042
     Dates: start: 20120723, end: 20190325
  4. LEKADOL [Concomitant]
     Active Substance: ACETAMINOPHEN
     Dosage: UNSPECIFIED DOSAGE FORM

REACTIONS (7)
  - Nausea [Recovered/Resolved]
  - Muscle spasms [Recovered/Resolved]
  - Altered state of consciousness [Recovered/Resolved]
  - Sinus bradycardia [Recovered/Resolved]
  - Anaphylactic reaction [Recovered/Resolved]
  - Cardiac arrest [Recovered/Resolved]
  - Erythema [Recovered/Resolved]

NARRATIVE: CASE EVENT DATE: 20190322
